FAERS Safety Report 20849642 (Version 2)
Quarter: 2022Q4

REPORT INFORMATION
  Report Type: Spontaneous
  Country: US (occurrence: None)
  Receive Date: 20220519
  Receipt Date: 20221102
  Transmission Date: 20230113
  Serious: Yes (Hospitalization, Other)
  Sender: FDA-Public Use
  Company Number: 2022A182855

PATIENT
  Age: 70 Year
  Sex: Male
  Weight: 99.8 kg

DRUGS (20)
  1. NEXIUM [Suspect]
     Active Substance: ESOMEPRAZOLE MAGNESIUM
     Indication: Gastrooesophageal reflux disease
     Route: 048
     Dates: start: 20080101, end: 20190718
  2. NEXIUM [Suspect]
     Active Substance: ESOMEPRAZOLE MAGNESIUM
     Indication: Gastrooesophageal reflux disease
     Dosage: 40.0MG UNKNOWN
     Route: 048
     Dates: start: 200801, end: 20190718
  3. NEXIUM [Suspect]
     Active Substance: ESOMEPRAZOLE MAGNESIUM
     Indication: Gastrooesophageal reflux disease
     Dosage: 40.0MG UNKNOWN
     Route: 048
     Dates: start: 20130212
  4. FINASTERIDE [Concomitant]
     Active Substance: FINASTERIDE
     Indication: Prostatomegaly
     Dates: start: 2014, end: 2022
  5. SIMVASTATIN [Concomitant]
     Active Substance: SIMVASTATIN
     Indication: Blood cholesterol increased
     Dates: start: 2012, end: 2022
  6. LISINOPRIL [Concomitant]
     Active Substance: LISINOPRIL
     Indication: Hypertension
     Dates: start: 2015, end: 2020
  7. ELIQUIS [Concomitant]
     Active Substance: APIXABAN
     Indication: Anticoagulant therapy
     Dates: start: 2016, end: 2022
  8. AMIODARONE [Concomitant]
     Active Substance: AMIODARONE
     Indication: Heart rate normal
     Dates: start: 2019, end: 2022
  9. TYLENOL [Concomitant]
     Active Substance: ACETAMINOPHEN
     Indication: Pain
  10. ZANTAC [Concomitant]
     Active Substance: RANITIDINE HYDROCHLORIDE
     Dates: start: 2013, end: 2018
  11. CARAFATE [Concomitant]
     Active Substance: SUCRALFATE
     Dates: start: 2013, end: 2018
  12. TORSEMIDE [Concomitant]
     Active Substance: TORSEMIDE
     Dates: start: 2013, end: 2018
  13. TOBRAMYCIN [Concomitant]
     Active Substance: TOBRAMYCIN
     Dates: start: 2013, end: 2018
  14. CEPHALEXIN [Concomitant]
     Active Substance: CEPHALEXIN
     Dates: start: 2013, end: 2018
  15. ALPRAZOLAM [Concomitant]
     Active Substance: ALPRAZOLAM
     Dates: start: 2013, end: 2018
  16. METOPROLOL [Concomitant]
     Active Substance: METOPROLOL
     Dates: start: 2013, end: 2018
  17. VITAMIN D [Concomitant]
     Active Substance: VITAMIN D NOS
     Dates: start: 2013, end: 2018
  18. NIFEDIPINE [Concomitant]
     Active Substance: NIFEDIPINE
     Dates: start: 2013, end: 2018
  19. ALFUZOCIN [Concomitant]
     Dates: start: 20111018
  20. PANTOPRAZOLE [Concomitant]
     Active Substance: PANTOPRAZOLE
     Dates: start: 20191020

REACTIONS (3)
  - Bladder cancer [Unknown]
  - Chronic kidney disease [Not Recovered/Not Resolved]
  - Renal failure [Unknown]

NARRATIVE: CASE EVENT DATE: 20140101
